FAERS Safety Report 13406497 (Version 1)
Quarter: 2017Q2

REPORT INFORMATION
  Report Type: Spontaneous
  Country: US (occurrence: US)
  Receive Date: 20170405
  Receipt Date: 20170405
  Transmission Date: 20170830
  Serious: Yes (Other)
  Sender: FDA-Public Use
  Company Number: US-IMPAX LABORATORIES, INC-2017-IPXL-00789

PATIENT
  Age: 8 Month
  Sex: Male

DRUGS (1)
  1. ADRENACLICK [Suspect]
     Active Substance: EPINEPHRINE
     Indication: PRODUCT USED FOR UNKNOWN INDICATION
     Dosage: 2 MG; UNK
     Route: 042

REACTIONS (4)
  - Tachycardia [Unknown]
  - Accidental overdose [Unknown]
  - Agitation [Unknown]
  - Incorrect route of drug administration [Unknown]
